FAERS Safety Report 18142855 (Version 1)
Quarter: 2020Q3

REPORT INFORMATION
  Report Type: Spontaneous
  Country: JP (occurrence: JP)
  Receive Date: 20200813
  Receipt Date: 20200813
  Transmission Date: 20201103
  Serious: Yes (Other)
  Sender: FDA-Public Use
  Company Number: JP-AMGEN-JPNSP2020130976

PATIENT
  Sex: Female

DRUGS (1)
  1. ENBREL [Suspect]
     Active Substance: ETANERCEPT
     Indication: PRODUCT USED FOR UNKNOWN INDICATION
     Dosage: 50 MG, WEEKLY
     Route: 058

REACTIONS (10)
  - Rash pruritic [Unknown]
  - Middle ear effusion [Unknown]
  - Pain in jaw [Unknown]
  - Eye pain [Unknown]
  - Stomatitis [Unknown]
  - Feeling hot [Unknown]
  - Ocular hyperaemia [Unknown]
  - Eye pruritus [Unknown]
  - Nail discolouration [Recovering/Resolving]
  - Onychoclasis [Recovering/Resolving]
